FAERS Safety Report 6472579-X (Version None)
Quarter: 2009Q4

REPORT INFORMATION
  Report Type: 
  Country: None (occurrence: None)
  Receive Date: 20091203
  Receipt Date: 20090112
  Transmission Date: 20100525
  Serious: No
  Sender: FDA-Public Use
  Company Number: US-AMGEN-KDL323028

PATIENT
  Sex: Male
  Weight: 79 kg

DRUGS (6)
  1. ENBREL [Suspect]
     Indication: PSORIASIS
     Route: 058
     Dates: start: 20081110
  2. MAVIK [Concomitant]
  3. CALAN - SLOW RELEASE [Concomitant]
  4. ASPIRIN [Concomitant]
  5. DIFLORASONE DIACETATE [Concomitant]
  6. LOPROX [Concomitant]

REACTIONS (4)
  - INJECTION SITE ERYTHEMA [None]
  - INJECTION SITE INDURATION [None]
  - INJECTION SITE SWELLING [None]
  - INJECTION SITE WARMTH [None]
